FAERS Safety Report 15868529 (Version 3)
Quarter: 2019Q1

REPORT INFORMATION
  Report Type: Spontaneous
  Country: US (occurrence: US)
  Receive Date: 20190125
  Receipt Date: 20190308
  Transmission Date: 20190417
  Serious: Yes (Other)
  Sender: FDA-Public Use
  Company Number: US-ASTRAZENECA-2019SE14412

PATIENT
  Sex: Male

DRUGS (2)
  1. SYMBICORT [Suspect]
     Active Substance: BUDESONIDE\FORMOTEROL FUMARATE DIHYDRATE
     Indication: EMPHYSEMA
     Dosage: 160/4.5, TWO PUFFS TWO TIMES A DAY
     Route: 055
     Dates: start: 2014
  2. SYMBICORT [Suspect]
     Active Substance: BUDESONIDE\FORMOTEROL FUMARATE DIHYDRATE
     Indication: CHRONIC OBSTRUCTIVE PULMONARY DISEASE
     Dosage: 160/4.5, TWO PUFFS TWO TIMES A DAY
     Route: 055
     Dates: start: 2014

REACTIONS (6)
  - Off label use of device [Unknown]
  - Neoplasm malignant [Unknown]
  - Atrial fibrillation [Unknown]
  - Weight decreased [Unknown]
  - Device malfunction [Unknown]
  - Cardiac disorder [Unknown]
